FAERS Safety Report 7322590-1 (Version None)
Quarter: 2011Q1

REPORT INFORMATION
  Report Type: 
  Country: None (occurrence: None)
  Receive Date: 20110301
  Receipt Date: 20091124
  Transmission Date: 20110831
  Serious: No
  Sender: FDA-Public Use
  Company Number: US-PFIZER INC-2009303243

PATIENT
  Sex: Male
  Weight: 109 kg

DRUGS (4)
  1. METFORMIN HCL [Suspect]
     Dosage: UNK
  2. ENALAPRIL [Concomitant]
     Indication: HYPERTENSION
     Dosage: UNK
  3. GLIPIZIDE [Suspect]
     Indication: DIABETES MELLITUS
     Dosage: 10 MG, 2X/DAY
  4. LOVASTATIN [Concomitant]
     Indication: BLOOD CHOLESTEROL INCREASED
     Dosage: UNK

REACTIONS (1)
  - BLOOD GLUCOSE INCREASED [None]
